FAERS Safety Report 5159223-9 (Version None)
Quarter: 2006Q4

REPORT INFORMATION
  Report Type: 
  Country: None (occurrence: None)
  Receive Date: 20061128
  Receipt Date: 20011121
  Transmission Date: 20070319
  Serious: Yes (Other)
  Sender: FDA-Public Use
  Company Number: US-MERCK-01112955

PATIENT
  Sex: Female

DRUGS (4)
  1. FOSAMAX [Suspect]
     Indication: OSTEOPOROSIS
     Route: 048
     Dates: start: 20001220
  2. FOSAMAX [Suspect]
     Route: 048
     Dates: start: 19990601, end: 20001219
  3. CELEBREX [Concomitant]
     Route: 065
  4. EVISTA [Concomitant]
     Route: 065
     Dates: start: 20010606, end: 20010711

REACTIONS (6)
  - ACTIVITIES OF DAILY LIVING IMPAIRED [None]
  - DENTAL CARIES [None]
  - DRUG INEFFECTIVE [None]
  - GAIT DISTURBANCE [None]
  - NAIL DISORDER [None]
  - PAIN [None]
